FAERS Safety Report 8131667-2 (Version None)
Quarter: 2012Q1

REPORT INFORMATION
  Report Type: 
  Country: None (occurrence: None)
  Receive Date: 20120208
  Receipt Date: 20120131
  Transmission Date: 20120608
  Serious: Yes (Hospitalization, Other)
  Sender: FDA-Public Use
  Company Number: 2012SP005920

PATIENT
  Sex: Female

DRUGS (2)
  1. RIBAVIRIN [Suspect]
     Indication: HEPATITIS
     Dates: start: 20111031, end: 20111220
  2. PEG-INTRON [Suspect]
     Indication: HEPATITIS
     Dates: start: 20111031, end: 20111220

REACTIONS (2)
  - INTRACRANIAL ANEURYSM [None]
  - AMNESIA [None]
